FAERS Safety Report 7979406-X (Version None)
Quarter: 2011Q4

REPORT INFORMATION
  Report Type: 
  Country: None (occurrence: None)
  Receive Date: 20111213
  Receipt Date: 20111213
  Transmission Date: 20120403
  Serious: Yes (Life-Threatening, Hospitalization)
  Sender: FDA-Public Use
  Company Number: None

PATIENT
  Age: 63 Year
  Sex: Male
  Weight: 71.8 kg

DRUGS (1)
  1. METHOTREXATE [Suspect]
     Indication: RHEUMATOID ARTHRITIS
     Dosage: 5 MG QWEEK PO
     Route: 048
     Dates: start: 20100406, end: 20110720

REACTIONS (7)
  - HYPOXIA [None]
  - TOXICITY TO VARIOUS AGENTS [None]
  - BRONCHOALVEOLAR LAVAGE ABNORMAL [None]
  - RESPIRATORY DISTRESS [None]
  - PNEUMONIA [None]
  - LUNG DISORDER [None]
  - PULMONARY TOXICITY [None]
